FAERS Safety Report 7110062-9 (Version None)
Quarter: 2010Q4

REPORT INFORMATION
  Report Type: 
  Country: None (occurrence: None)
  Receive Date: 20101112
  Receipt Date: 20101027
  Transmission Date: 20110411
  Serious: Yes (Hospitalization)
  Sender: FDA-Public Use
  Company Number: 1-18212850

PATIENT
  Age: 48 Year
  Sex: Female
  Weight: 61.2356 kg

DRUGS (3)
  1. QUININE SULFATE [Suspect]
     Indication: MUSCLE SPASMS
     Dosage: AS NEEDED, ORAL
     Route: 048
  2. CLINORIL [Concomitant]
  3. LOTREL (AMLODIPINE AND BENAZEPRIL) [Concomitant]

REACTIONS (11)
  - COAGULOPATHY [None]
  - CORNEAL TRANSPLANT [None]
  - COUGH [None]
  - HAEMOLYTIC ANAEMIA [None]
  - HAEMORRHAGE [None]
  - HEPATITIS C [None]
  - KERATOCONUS [None]
  - MULTIPLE ALLERGIES [None]
  - PAIN [None]
  - THROMBOCYTOPENIA [None]
  - UNEVALUABLE EVENT [None]
